FAERS Safety Report 14447994 (Version 1)
Quarter: 2018Q1

REPORT INFORMATION
  Report Type: Spontaneous
  Country: FR (occurrence: FR)
  Receive Date: 20180126
  Receipt Date: 20180126
  Transmission Date: 20180509
  Serious: Yes (Other)
  Sender: FDA-Public Use
  Company Number: FR-SHIRE-FR201728605

PATIENT

DRUGS (1)
  1. ELAPRASE [Suspect]
     Active Substance: IDURSULFASE
     Indication: MUCOPOLYSACCHARIDOSIS II
     Route: 065

REACTIONS (9)
  - Gait disturbance [Unknown]
  - Mobility decreased [Unknown]
  - Joint stiffness [Unknown]
  - Psychomotor hyperactivity [Unknown]
  - Intentional self-injury [Unknown]
  - Sleep disorder [Unknown]
  - Disease progression [Unknown]
  - Aggression [Unknown]
  - Abnormal behaviour [Unknown]
